FAERS Safety Report 9846386 (Version 1)
Quarter: 2014Q1

REPORT INFORMATION
  Report Type: Spontaneous
  Country: US (occurrence: None)
  Receive Date: 20140122
  Receipt Date: 20140122
  Transmission Date: 20141002
  Serious: Yes (Other)
  Sender: FDA-Public Use
  Company Number: 2013SA121949

PATIENT
  Age: 60 Year
  Sex: Female
  Weight: 89.35 kg

DRUGS (6)
  1. ASPERCREME NOS [Suspect]
     Indication: PAIN
     Dates: start: 20131120, end: 20131120
  2. SINGULAIR [Concomitant]
  3. CARBAMAZEPINE [Concomitant]
  4. GENERAL NUTRIENTS [Concomitant]
  5. FISH OIL [Concomitant]
  6. LINZESS [Concomitant]

REACTIONS (3)
  - Application site pain [None]
  - Application site erythema [None]
  - Chemical burn of skin [None]
